FAERS Safety Report 4516218-3 (Version None)
Quarter: 2004Q4

REPORT INFORMATION
  Report Type: 
  Country: None (occurrence: None)
  Receive Date: 20041130
  Receipt Date: 20041130
  Transmission Date: 20050328
  Serious: Yes (Life-Threatening, Hospitalization)
  Sender: FDA-Public Use
  Company Number: None

PATIENT
  Age: 94 Year
  Sex: Female

DRUGS (3)
  1. WARFARIN SODIUM [Suspect]
     Indication: ARRHYTHMIA
     Dosage: WARFARIN   1MG ALT W/ 2MG  ORAL
     Route: 048
     Dates: start: 20030101, end: 20040829
  2. WARFARIN SODIUM [Suspect]
     Indication: HYPERTENSION
     Dosage: WARFARIN   1MG ALT W/ 2MG  ORAL
     Route: 048
     Dates: start: 20030101, end: 20040829
  3. ASPIRIN [Suspect]
     Dosage: ASPIRIN    81MG   ORAL
     Route: 048
     Dates: start: 20030101, end: 20040829

REACTIONS (1)
  - CEREBRAL HAEMORRHAGE [None]
